APPROVED DRUG PRODUCT: MICONAZOLE NITRATE
Active Ingredient: MICONAZOLE NITRATE
Strength: 4%
Dosage Form/Route: CREAM;VAGINAL
Application: A091366 | Product #001
Applicant: PERRIGO R AND D CO
Approved: Jan 15, 2010 | RLD: No | RS: No | Type: OTC